FAERS Safety Report 6408601-6 (Version None)
Quarter: 2009Q4

REPORT INFORMATION
  Report Type: 
  Country: None (occurrence: None)
  Receive Date: 20091019
  Receipt Date: 20091001
  Transmission Date: 20100525
  Serious: Yes (Disabling)
  Sender: FDA-Public Use
  Company Number: 2009GR_BP3250

PATIENT
  Age: 42 Year
  Sex: Male

DRUGS (5)
  1. TERBINAFINE HCL [Suspect]
     Indication: FUNGAL SKIN INFECTION
     Dosage: 250 MG ORAL
     Route: 048
     Dates: start: 20080609, end: 20080624
  2. BECLOMETHASONE DIPROPIONATE [Concomitant]
  3. SALBUTAMOL (SALBUTAMOL) [Concomitant]
  4. MOMETASONE FUROATE [Concomitant]
  5. FLUOCINONIDE [Concomitant]

REACTIONS (4)
  - FATIGUE [None]
  - MITOCHONDRIAL MYOPATHY [None]
  - MYALGIA [None]
  - RASH [None]
